FAERS Safety Report 5096261-9 (Version None)
Quarter: 2006Q3

REPORT INFORMATION
  Report Type: 
  Country: None (occurrence: None)
  Receive Date: 20060831
  Receipt Date: 20050919
  Transmission Date: 20061208
  Serious: Yes (Death)
  Sender: FDA-Public Use
  Company Number: PAR_0303_2005

PATIENT
  Age: 44 Year
  Sex: 0

DRUGS (3)
  1. LISINOPRIL [Suspect]
     Dosage: DF PO
     Route: 048
  2. ALPRAZOLAM [Suspect]
     Dosage: DF PO
     Route: 048
  3. AMLODIPINE [Suspect]
     Dosage: DF PO
     Route: 048

REACTIONS (1)
  - DEATH [None]
